FAERS Safety Report 7472732-2 (Version None)
Quarter: 2011Q2

REPORT INFORMATION
  Report Type: 
  Country: None (occurrence: None)
  Receive Date: 20110511
  Receipt Date: 20110504
  Transmission Date: 20111010
  Serious: Yes (Hospitalization)
  Sender: FDA-Public Use
  Company Number: CH-PFIZER INC-CHWYE624115MAY06

PATIENT
  Age: 63 Year
  Sex: Male

DRUGS (11)
  1. PIROXICAM [Interacting]
     Indication: POLYARTHRITIS
     Dosage: 20 MG, 1X/DAY
     Route: 048
     Dates: end: 20060423
  2. XALATAN [Concomitant]
     Dosage: 1 DF, 1X/DAY
     Route: 061
  3. EPACAPS [Concomitant]
     Indication: ARTERIOSCLEROSIS
     Dosage: 1 DF, 2X/DAY
     Route: 048
  4. TRAMAL [Concomitant]
     Indication: BACK PAIN
     Dosage: 20 GTT, 1X/DAY
     Route: 048
  5. ATORVASTATIN CALCIUM [Concomitant]
     Indication: ARTERIOSCLEROSIS
     Dosage: 10 MG, 1X/DAY
     Route: 048
  6. AGOPTON [Concomitant]
     Dosage: 30 MG, 1X/DAY
     Route: 048
     Dates: start: 20020101
  7. NIASPAN [Concomitant]
     Dosage: 5 MG, 3X/1 WEEK
     Route: 048
  8. ASPIRIN [Interacting]
     Indication: METABOLIC DISORDER
     Dosage: 300 MG, 1X/DAY
     Route: 048
     Dates: start: 20030101, end: 20060423
  9. METHOTREXATE [Suspect]
     Indication: POLYARTHRITIS
     Dosage: 20 MG, WEEKLY
     Route: 065
     Dates: start: 19990101, end: 20060423
  10. LASILACTONE [Concomitant]
     Indication: ESSENTIAL HYPERTENSION
     Dosage: 50 MG, CYCLIC
     Route: 048
     Dates: end: 20060401
  11. ALLOPURINOL [Concomitant]
     Dosage: 300 MG, 1X/DAY
     Route: 048

REACTIONS (9)
  - ANAEMIA [None]
  - DRUG INTERACTION [None]
  - DIZZINESS POSTURAL [None]
  - DUODENAL ULCER [None]
  - GASTROINTESTINAL ULCER HAEMORRHAGE [None]
  - MALAISE [None]
  - TACHYCARDIA [None]
  - HAEMODYNAMIC INSTABILITY [None]
  - INTESTINAL ULCER [None]
